FAERS Safety Report 20979575 (Version 1)
Quarter: 2022Q2

REPORT INFORMATION
  Report Type: Spontaneous
  Country: KR (occurrence: None)
  Receive Date: 20220620
  Receipt Date: 20220620
  Transmission Date: 20220721
  Serious: Yes (Other)
  Sender: FDA-Public Use
  Company Number: KR-ROCHE-3120256

PATIENT
  Sex: Female

DRUGS (1)
  1. CLONAZEPAM [Suspect]
     Active Substance: CLONAZEPAM
     Indication: Insomnia
     Route: 048

REACTIONS (5)
  - Depressed level of consciousness [Unknown]
  - Amnesia [Unknown]
  - Dry mouth [Unknown]
  - Product use in unapproved indication [Unknown]
  - Intentional product use issue [Unknown]
